FAERS Safety Report 12378082 (Version 6)
Quarter: 2016Q3

REPORT INFORMATION
  Report Type: Report from Study
  Country: US (occurrence: US)
  Receive Date: 20160517
  Receipt Date: 20160816
  Transmission Date: 20161109
  Serious: Yes (Hospitalization, Other)
  Sender: FDA-Public Use
  Company Number: US-GILEAD-2016-0213528

PATIENT
  Age: 75 Year
  Sex: Male
  Weight: 75.28 kg

DRUGS (11)
  1. IDELALISIB [Suspect]
     Active Substance: IDELALISIB
     Indication: B-CELL LYMPHOMA
     Dosage: 150 MG, BID
     Route: 048
     Dates: start: 20150825
  2. LEVOTHYROXINE. [Concomitant]
     Active Substance: LEVOTHYROXINE
     Dosage: 25 UNK, UNK
     Route: 048
     Dates: start: 201601
  3. KEPPRA [Concomitant]
     Active Substance: LEVETIRACETAM
     Dosage: 250
     Route: 048
     Dates: start: 201601
  4. DIGOXIN. [Concomitant]
     Active Substance: DIGOXIN
     Dosage: 250
     Route: 048
     Dates: start: 201601
  5. GLIPIZIDE. [Concomitant]
     Active Substance: GLIPIZIDE
     Dosage: 10
     Route: 048
     Dates: start: 201601
  6. PANTOPRAZOLE [Concomitant]
     Active Substance: PANTOPRAZOLE SODIUM
     Dosage: 40 UNK, UNK
     Route: 048
     Dates: start: 201601
  7. LASIX [Concomitant]
     Active Substance: FUROSEMIDE
  8. BACTRIM DS [Concomitant]
     Active Substance: SULFAMETHOXAZOLE\TRIMETHOPRIM
     Dosage: 800-160
     Route: 048
     Dates: start: 20160511
  9. KLOR-CON [Concomitant]
     Active Substance: POTASSIUM CHLORIDE
     Dosage: 20
     Route: 048
     Dates: start: 201601
  10. CARVEDILOL. [Concomitant]
     Active Substance: CARVEDILOL
     Dosage: 3.125
     Route: 048
     Dates: start: 201601
  11. ENALAPRIL [Concomitant]
     Active Substance: ENALAPRIL
     Dosage: 10

REACTIONS (16)
  - Diarrhoea [Recovered/Resolved]
  - Pneumonia [Unknown]
  - Drug dose omission [Unknown]
  - Insomnia [Unknown]
  - Abdominal pain upper [Recovered/Resolved]
  - Dyspnoea [Recovered/Resolved]
  - Pleural effusion [Recovered/Resolved]
  - Nausea [Recovering/Resolving]
  - Asthenia [Recovered/Resolved]
  - Weight decreased [Unknown]
  - Asthenia [Unknown]
  - Activities of daily living impaired [Unknown]
  - Fatigue [Unknown]
  - Atrial fibrillation [Recovered/Resolved]
  - Pleural effusion [Unknown]
  - Decreased appetite [Recovering/Resolving]

NARRATIVE: CASE EVENT DATE: 201605
